FAERS Safety Report 7111193-X (Version None)
Quarter: 2010Q4

REPORT INFORMATION
  Report Type: 
  Country: None (occurrence: None)
  Receive Date: 20101118
  Receipt Date: 20101105
  Transmission Date: 20110411
  Serious: Yes (Death, Life-Threatening)
  Sender: FDA-Public Use
  Company Number: US-MYLANLABS-2010S1020745

PATIENT
  Age: 25 Year
  Sex: Female

DRUGS (2)
  1. VENLAFAXINE [Suspect]
     Indication: OVERDOSE
     Route: 048
  2. BUPROPION [Concomitant]
     Indication: OVERDOSE
     Route: 048

REACTIONS (8)
  - ABDOMINAL COMPARTMENT SYNDROME [None]
  - ACUTE HEPATIC FAILURE [None]
  - ACUTE RESPIRATORY DISTRESS SYNDROME [None]
  - CARDIOGENIC SHOCK [None]
  - DISSEMINATED INTRAVASCULAR COAGULATION [None]
  - GASTROINTESTINAL HAEMORRHAGE [None]
  - OVERDOSE [None]
  - RENAL FAILURE ACUTE [None]
